FAERS Safety Report 10046226 (Version 8)
Quarter: 2015Q2

REPORT INFORMATION
  Report Type: Report from Study
  Country: GB (occurrence: GB)
  Receive Date: 20140331
  Receipt Date: 20150407
  Transmission Date: 20150821
  Serious: Yes (Hospitalization)
  Sender: FDA-Public Use
  Company Number: GB-ROCHE-1369603

PATIENT
  Age: 49 Year
  Sex: Male
  Weight: 104 kg

DRUGS (6)
  1. FOLIC ACID. [Concomitant]
     Active Substance: FOLIC ACID
     Route: 065
     Dates: start: 20130703
  2. TOCILIZUMAB [Suspect]
     Active Substance: TOCILIZUMAB
     Indication: RHEUMATOID ARTHRITIS
     Dosage: DATE OF LAST DOSE PRIOR TO BOTH SAE^S 07/MAR/2014
     Route: 042
     Dates: start: 20140307, end: 20140314
  3. OMEPRAZOLE. [Concomitant]
     Active Substance: OMEPRAZOLE
     Route: 065
     Dates: start: 20130603
  4. NAPROXEN. [Concomitant]
     Active Substance: NAPROXEN
     Route: 065
     Dates: start: 20130603
  5. METHOTREXATE [Suspect]
     Active Substance: METHOTREXATE
     Indication: RHEUMATOID ARTHRITIS
     Dosage: LAST DOSE PRIOR TO LRTI: 08/MAR/2014
     Route: 048
     Dates: start: 20140307, end: 20140315
  6. METHOTREXATE [Suspect]
     Active Substance: METHOTREXATE
     Dosage: LAST DOSE PRIOR TO PLEURISY: 11/APR/2014
     Route: 048
     Dates: start: 20140329, end: 20140411

REACTIONS (2)
  - Pleurisy [Unknown]
  - Lower respiratory tract infection [Unknown]

NARRATIVE: CASE EVENT DATE: 20140314
